FAERS Safety Report 14343374 (Version 1)
Quarter: 2018Q1

REPORT INFORMATION
  Report Type: Spontaneous
  Country: US (occurrence: US)
  Receive Date: 20180101
  Receipt Date: 20180101
  Transmission Date: 20180509
  Serious: Yes (Disabling)
  Sender: FDA-Public Use
  Company Number: None

PATIENT
  Sex: Female

DRUGS (1)
  1. LATUDA [Suspect]
     Active Substance: LURASIDONE HYDROCHLORIDE
     Indication: BIPOLAR DISORDER
     Dosage: ORAL WITH DINNER
     Route: 048
     Dates: start: 20171206, end: 20171212

REACTIONS (2)
  - Pain in extremity [None]
  - Paraesthesia [None]

NARRATIVE: CASE EVENT DATE: 20171206
